FAERS Safety Report 11831723 (Version 1)
Quarter: 2015Q4

REPORT INFORMATION
  Report Type: Spontaneous
  Country: US (occurrence: None)
  Receive Date: 20151211
  Receipt Date: 20151211
  Transmission Date: 20160305
  Serious: Yes (Hospitalization)
  Sender: FDA-Public Use
  Company Number: None

PATIENT
  Age: 35 Year
  Sex: Female

DRUGS (1)
  1. AZITHROMYCIN [Suspect]
     Active Substance: AZITHROMYCIN ANHYDROUS
     Dates: start: 20140530, end: 20140603

REACTIONS (8)
  - Cholelithiasis [None]
  - Steatohepatitis [None]
  - Hepatic fibrosis [None]
  - Drug-induced liver injury [None]
  - Hepatic encephalopathy [None]
  - Varices oesophageal [None]
  - Vascular pseudoaneurysm [None]
  - Hepatic cirrhosis [None]

NARRATIVE: CASE EVENT DATE: 20140628
